FAERS Safety Report 19162814 (Version 1)
Quarter: 2021Q2

REPORT INFORMATION
  Report Type: Spontaneous
  Country: US (occurrence: US)
  Receive Date: 20210419
  Receipt Date: 20210419
  Transmission Date: 20210717
  Serious: Yes (Hospitalization, Disabling, Other)
  Sender: FDA-Public Use
  Company Number: None

PATIENT
  Age: 59 Year
  Sex: Female

DRUGS (1)
  1. BRIGHT EYES [HERBALS] [Suspect]
     Active Substance: HERBALS
     Dates: start: 20210401, end: 20210407

REACTIONS (2)
  - Eye degenerative disorder [None]
  - Ulcerative keratitis [None]

NARRATIVE: CASE EVENT DATE: 20210407
